FAERS Safety Report 8481059-1 (Version None)
Quarter: 2012Q3

REPORT INFORMATION
  Report Type: 
  Country: None (occurrence: None)
  Receive Date: 20120702
  Receipt Date: 20120622
  Transmission Date: 20120928
  Serious: Yes (Other)
  Sender: FDA-Public Use
  Company Number: PHFR2012GB003312

PATIENT
  Sex: Male
  Weight: 83 kg

DRUGS (5)
  1. CITALOPRAM HYDROBROMIDE [Concomitant]
     Indication: DEPRESSION
     Dosage: 30 MG, DAILY
     Route: 048
  2. FYBOGEL [Concomitant]
     Indication: CONSTIPATION
     Route: 048
  3. PIRENZEPINE [Concomitant]
     Indication: SALIVARY HYPERSECRETION
     Dosage: 100 MG, UNK
     Route: 048
  4. CLOZARIL [Suspect]
     Route: 048
  5. INSULIN [Concomitant]
     Indication: DIABETES MELLITUS

REACTIONS (1)
  - HEPATITIS C [None]
